FAERS Safety Report 8536577 (Version 3)
Quarter: 2013Q4

REPORT INFORMATION
  Report Type: Spontaneous
  Country: US (occurrence: US)
  Receive Date: 20120430
  Receipt Date: 20131107
  Transmission Date: 20140711
  Serious: Yes (Other)
  Sender: FDA-Public Use
  Company Number: US-ROCHE-1061719

PATIENT
  Age: 14 Year
  Sex: Male

DRUGS (5)
  1. ACCUTANE [Suspect]
     Indication: ACNE
     Route: 048
     Dates: start: 20020911, end: 20030127
  2. ACCUTANE [Suspect]
     Route: 048
     Dates: start: 20030307, end: 20030407
  3. ACCUTANE [Suspect]
     Route: 048
     Dates: start: 2002, end: 2004
  4. AMNESTEEM [Suspect]
     Indication: ACNE
     Route: 065
     Dates: start: 20030221, end: 20030307
  5. CLARAVIS [Suspect]
     Indication: ACNE
     Route: 065
     Dates: start: 20040106, end: 20040927

REACTIONS (15)
  - Colitis ulcerative [Unknown]
  - Crohn^s disease [Unknown]
  - Inflammatory bowel disease [Unknown]
  - Irritable bowel syndrome [Unknown]
  - Anxiety [Unknown]
  - Depression [Unknown]
  - Blood triglycerides increased [Unknown]
  - Blood cholesterol increased [Unknown]
  - Skin papilloma [Unknown]
  - Lip dry [Unknown]
  - Dry skin [Unknown]
  - Epistaxis [Unknown]
  - Psoriasis [Unknown]
  - Eczema [Unknown]
  - Blood cholesterol decreased [Unknown]
